FAERS Safety Report 12693435 (Version 1)
Quarter: 2016Q3

REPORT INFORMATION
  Report Type: Spontaneous
  Country: US (occurrence: US)
  Receive Date: 20160829
  Receipt Date: 20160829
  Transmission Date: 20161109
  Serious: Yes (Other)
  Sender: FDA-Public Use
  Company Number: US-GLAXOSMITHKLINE-US2016122898

PATIENT
  Age: 33 Year
  Sex: Female

DRUGS (2)
  1. ADVAIR DISKUS [Suspect]
     Active Substance: FLUTICASONE PROPIONATE\SALMETEROL XINAFOATE
     Indication: ASTHMA
     Dosage: 250/50
     Route: 055
     Dates: start: 2012
  2. OMEPRAZOLE. [Concomitant]
     Active Substance: OMEPRAZOLE

REACTIONS (5)
  - Dysphagia [Recovering/Resolving]
  - Asthma [Recovering/Resolving]
  - Pneumonia [Recovering/Resolving]
  - Oesophageal candidiasis [Unknown]
  - Acquired oesophageal web [Recovering/Resolving]

NARRATIVE: CASE EVENT DATE: 2016
